FAERS Safety Report 9471067 (Version 1)
Quarter: 2013Q3

REPORT INFORMATION
  Report Type: Spontaneous
  Country: US (occurrence: US)
  Receive Date: 20130822
  Receipt Date: 20130822
  Transmission Date: 20140515
  Serious: Yes (Hospitalization, Other)
  Sender: FDA-Public Use
  Company Number: US-PFIZER INC-2013243161

PATIENT
  Age: 65 Year
  Sex: Male
  Weight: 88.44 kg

DRUGS (3)
  1. LYRICA [Suspect]
     Indication: DIABETIC NEUROPATHY
     Dosage: UNK
  2. LYRICA [Suspect]
     Dosage: 900 MG, UNK
     Dates: start: 2013
  3. LYRICA [Suspect]
     Dosage: 600 MG, AS NEEDED

REACTIONS (7)
  - Off label use [Unknown]
  - Intentional drug misuse [Unknown]
  - Diabetes mellitus [Unknown]
  - Hernia [Unknown]
  - Lower limb fracture [Recovered/Resolved]
  - Anaemia [Unknown]
  - Drug ineffective [Unknown]
